FAERS Safety Report 14208503 (Version 4)
Quarter: 2020Q1

REPORT INFORMATION
  Report Type: Report from Study
  Country: US (occurrence: US)
  Receive Date: 20171121
  Receipt Date: 20200224
  Transmission Date: 20200409
  Serious: Yes (Other)
  Sender: FDA-Public Use
  Company Number: US-TAKEDA-2017TUS023190

PATIENT
  Age: 39 Year
  Sex: Female
  Weight: 70.3 kg

DRUGS (5)
  1. VEDOLIZUMAB [Suspect]
     Active Substance: VEDOLIZUMAB
     Indication: CROHN^S DISEASE
     Dosage: 300 MILLIGRAM
     Route: 042
     Dates: start: 20150201, end: 20180222
  2. CALCIUM [Concomitant]
     Active Substance: CALCIUM
     Dosage: 1000 MILLIGRAM, QD
     Route: 048
     Dates: start: 20170721, end: 20180222
  3. CAFFEINE. [Concomitant]
     Active Substance: CAFFEINE
     Dosage: UNK UNK, 2/WEEK
     Dates: start: 20170623, end: 20180222
  4. DHA [Concomitant]
     Active Substance: DIETARY SUPPLEMENT
     Dosage: UNK UNK, QD
     Route: 048
     Dates: start: 20170721, end: 20180222
  5. VITAMIN B6 [Concomitant]
     Active Substance: PYRIDOXINE HYDROCHLORIDE
     Dosage: UNK UNK, QD
     Route: 048
     Dates: start: 20170915, end: 20180222

REACTIONS (9)
  - Fall [Recovered/Resolved]
  - Cholestasis [Unknown]
  - Cellulitis [Unknown]
  - Headache [Unknown]
  - Sleep disorder [Unknown]
  - Pharyngitis streptococcal [Recovered/Resolved]
  - Dyspepsia [Unknown]
  - Pregnancy [Recovered/Resolved]
  - Gastroenteritis viral [Recovered/Resolved]

NARRATIVE: CASE EVENT DATE: 20170714
